FAERS Safety Report 6488798-2 (Version None)
Quarter: 2009Q4

REPORT INFORMATION
  Report Type: 
  Country: None (occurrence: None)
  Receive Date: 20091207
  Receipt Date: 20091202
  Transmission Date: 20100525
  Serious: Yes (Death, Other)
  Sender: FDA-Public Use
  Company Number: 2009SP039370

PATIENT
  Age: 69 Year
  Sex: Male

DRUGS (1)
  1. NOXAFIL [Suspect]
     Indication: CHRONIC LYMPHOCYTIC LEUKAEMIA
     Dosage: 400 MG; QD; PO
     Route: 048
     Dates: start: 20090901, end: 20090101

REACTIONS (3)
  - BRONCHOPNEUMONIA [None]
  - CANDIDIASIS [None]
  - IMMUNOSUPPRESSION [None]
